FAERS Safety Report 12670852 (Version 1)
Quarter: 2016Q3

REPORT INFORMATION
  Report Type: Spontaneous
  Country: US (occurrence: US)
  Receive Date: 20160822
  Receipt Date: 20160822
  Transmission Date: 20161109
  Serious: No
  Sender: FDA-Public Use
  Company Number: US-JAZZ-2016-US-006322

PATIENT
  Sex: Female

DRUGS (29)
  1. DALIRESP [Concomitant]
     Active Substance: ROFLUMILAST
  2. FISH OIL [Concomitant]
     Active Substance: FISH OIL
  3. ASPIRIN. [Concomitant]
     Active Substance: ASPIRIN
  4. REQUIP [Concomitant]
     Active Substance: ROPINIROLE HYDROCHLORIDE
  5. SYNTHROID [Concomitant]
     Active Substance: LEVOTHYROXINE SODIUM
  6. XYREM [Suspect]
     Active Substance: SODIUM OXYBATE
     Indication: CATAPLEXY
     Dosage: 3.75 G, BID
     Route: 048
     Dates: start: 201410, end: 2014
  7. XYREM [Suspect]
     Active Substance: SODIUM OXYBATE
     Dosage: 4.5 G, BID
     Route: 048
     Dates: start: 201411
  8. PERI-COLACE [Concomitant]
     Active Substance: CASANTHRANOL\DOCUSATE SODIUM
  9. ADVAIR HFA [Concomitant]
     Active Substance: FLUTICASONE PROPIONATE\SALMETEROL XINAFOATE
  10. CLONAZEPAM. [Concomitant]
     Active Substance: CLONAZEPAM
  11. JANUVIA [Concomitant]
     Active Substance: SITAGLIPTIN PHOSPHATE
  12. VITAMIN D3 [Concomitant]
     Active Substance: CHOLECALCIFEROL
  13. ZOLOFT [Concomitant]
     Active Substance: SERTRALINE HYDROCHLORIDE
  14. ERGOCALCIFEROL. [Concomitant]
     Active Substance: ERGOCALCIFEROL
  15. LASIX [Concomitant]
     Active Substance: FUROSEMIDE
  16. SPIRIVA [Concomitant]
     Active Substance: TIOTROPIUM BROMIDE MONOHYDRATE
  17. KLOR-CON [Concomitant]
     Active Substance: POTASSIUM CHLORIDE
  18. KCL [Concomitant]
     Active Substance: POTASSIUM CHLORIDE
  19. FENTANYL. [Concomitant]
     Active Substance: FENTANYL
  20. LIPITOR [Concomitant]
     Active Substance: ATORVASTATIN CALCIUM
  21. SEROQUEL [Concomitant]
     Active Substance: QUETIAPINE FUMARATE
  22. MORPHINE SULF [Concomitant]
     Active Substance: MORPHINE SULFATE
  23. SPIRONOLACTONE. [Concomitant]
     Active Substance: SPIRONOLACTONE
  24. DILAUDID [Concomitant]
     Active Substance: HYDROMORPHONE HYDROCHLORIDE
  25. VENTOLIN HFA [Concomitant]
     Active Substance: ALBUTEROL SULFATE
  26. ALBUTEROL SULFATE. [Concomitant]
     Active Substance: ALBUTEROL SULFATE
  27. XYREM [Suspect]
     Active Substance: SODIUM OXYBATE
     Indication: NARCOLEPSY
     Dosage: 3 G, BID
     Dates: start: 201410, end: 201410
  28. ACTOS [Concomitant]
     Active Substance: PIOGLITAZONE HYDROCHLORIDE
  29. DEPLIN [Concomitant]
     Active Substance: LEVOMEFOLATE CALCIUM

REACTIONS (1)
  - Unevaluable event [Not Recovered/Not Resolved]
